FAERS Safety Report 6583976-6 (Version None)
Quarter: 2010Q1

REPORT INFORMATION
  Report Type: 
  Country: None (occurrence: None)
  Receive Date: 20100213
  Receipt Date: 20100213
  Transmission Date: 20100710
  Serious: No
  Sender: FDA-Public Use
  Company Number: None

PATIENT
  Age: 20 Year
  Sex: Female
  Weight: 86.1834 kg

DRUGS (1)
  1. MIRENA [Suspect]
     Indication: CONTRACEPTION
     Dosage: 20 MCGS DAILY 0-5YEARS INTRA-UTERINE
     Route: 015
     Dates: start: 20100104, end: 20100210

REACTIONS (10)
  - ABDOMINAL DISTENSION [None]
  - HEADACHE [None]
  - IRRITABILITY [None]
  - LOSS OF LIBIDO [None]
  - MENORRHAGIA [None]
  - NAUSEA [None]
  - PELVIC DISCOMFORT [None]
  - PELVIC PAIN [None]
  - SENSATION OF HEAVINESS [None]
  - VULVOVAGINAL MYCOTIC INFECTION [None]
